FAERS Safety Report 12521764 (Version 1)
Quarter: 2016Q3

REPORT INFORMATION
  Report Type: Spontaneous
  Country: AU (occurrence: AU)
  Receive Date: 20160701
  Receipt Date: 20160701
  Transmission Date: 20161109
  Serious: Yes (Other)
  Sender: FDA-Public Use
  Company Number: AU-BAUSCH-BL-2016-014585

PATIENT
  Age: 56 Year
  Sex: Male

DRUGS (2)
  1. GANCICLOVIR. [Suspect]
     Active Substance: GANCICLOVIR
     Indication: CYTOMEGALOVIRUS INFECTION
     Route: 042
  2. GANCICLOVIR. [Suspect]
     Active Substance: GANCICLOVIR
     Route: 048

REACTIONS (2)
  - Renal impairment [Recovering/Resolving]
  - Drug ineffective [Unknown]
